FAERS Safety Report 8142052 (Version 4)
Quarter: 2024Q3

REPORT INFORMATION
  Report Type: Spontaneous
  Country: JP (occurrence: JP)
  Receive Date: 20110919
  Receipt Date: 20240905
  Transmission Date: 20241016
  Serious: Yes (Hospitalization, Disabling, Other)
  Sender: PFIZER
  Company Number: JP-PFIZER INC-2011214148

PATIENT
  Age: 82 Year
  Sex: Male
  Weight: 96 kg

DRUGS (9)
  1. HYDROCORTISONE SODIUM SUCCINATE [Interacting]
     Active Substance: HYDROCORTISONE SODIUM SUCCINATE
     Indication: Bronchospasm
     Dosage: 250 MG
     Route: 042
  2. HYDROCORTISONE SODIUM SUCCINATE [Interacting]
     Active Substance: HYDROCORTISONE SODIUM SUCCINATE
     Indication: Pneumonia
  3. METHYLPREDNISOLONE SODIUM SUCCINATE [Interacting]
     Active Substance: METHYLPREDNISOLONE SODIUM SUCCINATE
     Indication: Bronchospasm
     Dosage: UNK
     Route: 042
  4. METHYLPREDNISOLONE SODIUM SUCCINATE [Interacting]
     Active Substance: METHYLPREDNISOLONE SODIUM SUCCINATE
     Indication: Pneumonia
  5. CORTRIL [Suspect]
     Active Substance: HYDROCORTISONE
     Indication: Bronchospasm
     Dosage: 250 MG
     Route: 048
     Dates: start: 19980512
  6. METHYLPREDNISOLONE [Suspect]
     Active Substance: METHYLPREDNISOLONE
     Indication: Bronchospasm
     Dosage: UNK
     Route: 048
     Dates: start: 19980512
  7. VECURONIUM BROMIDE [Interacting]
     Active Substance: VECURONIUM BROMIDE
     Indication: Muscle relaxant therapy
     Dosage: 1 MG/HR
     Route: 042
     Dates: start: 19980512, end: 19980522
  8. VECURONIUM BROMIDE [Interacting]
     Active Substance: VECURONIUM BROMIDE
     Indication: Ill-defined disorder
  9. MEROPENEM [Concomitant]
     Active Substance: MEROPENEM
     Indication: Pneumonia
     Dosage: 0.5 G, 1X/DAY
     Route: 042
     Dates: start: 19980511

REACTIONS (7)
  - Respiratory paralysis [Recovered/Resolved]
  - Quadriplegia [Recovered/Resolved]
  - Rhabdomyolysis [Recovered/Resolved with Sequelae]
  - Myopathy [Recovered/Resolved with Sequelae]
  - Drug interaction [Recovered/Resolved with Sequelae]
  - Pulmonary function test decreased [Recovered/Resolved]
  - Hepatic function abnormal [Recovered/Resolved]

NARRATIVE: CASE EVENT DATE: 19980512
